FAERS Safety Report 8882631 (Version 1)
Quarter: 2012Q4

REPORT INFORMATION
  Report Type: 
  Country: US (occurrence: US)
  Receive Date: 20121102
  Receipt Date: 20121102
  Transmission Date: 20130627
  Serious: Yes (Death, Hospitalization, Other)
  Sender: FDA-Public Use
  Company Number: PHHY2012US098861

PATIENT
  Age: 17 Year
  Sex: Female

DRUGS (6)
  1. TACROLIMUS [Suspect]
     Indication: IMMUNOSUPPRESSION
     Dosage: 2.5 mg, QD (1.5 mg AM and 1.0 mg PM )
  2. MYCOPHENOLATE MOFETIL [Suspect]
     Indication: IMMUNOSUPPRESSION
     Dosage: 750 mg, BID
  3. PREDNISONE [Suspect]
     Indication: IMMUNOSUPPRESSION
     Dosage: 5 mg, QD
  4. PREDNISONE [Suspect]
     Dosage: 60 mg, QD
     Route: 048
  5. PREDNISONE [Suspect]
     Dosage: 5 mg, QD
  6. METHYLPREDNISOLONE [Concomitant]
     Indication: IMMUNOSUPPRESSION

REACTIONS (23)
  - Sepsis [Fatal]
  - Mycobacterium avium complex infection [Unknown]
  - Oropharyngeal pain [Unknown]
  - Rhinorrhoea [Unknown]
  - Dysphagia [Unknown]
  - Malaise [Unknown]
  - Nodule [Unknown]
  - Breast mass [Unknown]
  - Weight decreased [Unknown]
  - Tonsillar inflammation [Unknown]
  - Lymphadenopathy [Unknown]
  - Abdominal mass [Unknown]
  - Abdominal lymphadenopathy [Unknown]
  - Splenomegaly [Unknown]
  - Acid fast bacilli infection [Unknown]
  - Granuloma [Unknown]
  - Pyrexia [Recovering/Resolving]
  - Abdominal pain [Unknown]
  - Skin lesion [Unknown]
  - Malnutrition [Unknown]
  - Vomiting [Unknown]
  - Chronic allograft nephropathy [Unknown]
  - Transplant rejection [Unknown]
